FAERS Safety Report 4971611-X (Version None)
Quarter: 2006Q2

REPORT INFORMATION
  Report Type: 
  Country: None (occurrence: None)
  Receive Date: 20060413
  Receipt Date: 20060405
  Transmission Date: 20061013
  Serious: Yes (Hospitalization, Other)
  Sender: FDA-Public Use
  Company Number: US-JNJFOC-20060401659

PATIENT
  Sex: Female
  Weight: 90.72 kg

DRUGS (2)
  1. ORTHO EVRA [Suspect]
  2. ORTHO EVRA [Suspect]
     Indication: CONTRACEPTION

REACTIONS (4)
  - CELLULITIS [None]
  - DEEP VEIN THROMBOSIS [None]
  - LOSS OF CONSCIOUSNESS [None]
  - PULMONARY EMBOLISM [None]
